FAERS Safety Report 13735805 (Version 1)
Quarter: 2017Q3

REPORT INFORMATION
  Report Type: Spontaneous
  Country: BR (occurrence: BR)
  Receive Date: 20170710
  Receipt Date: 20170710
  Transmission Date: 20171127
  Serious: Yes (Hospitalization)
  Sender: FDA-Public Use
  Company Number: PHHY2008BR14116

PATIENT
  Sex: Female
  Weight: 70 kg

DRUGS (6)
  1. MIGRAINE FORMULA [Suspect]
     Active Substance: ACETAMINOPHEN\ASPIRIN\CAFFEINE
  2. TYLENOL [Concomitant]
     Active Substance: ACETAMINOPHEN
  3. SUMATRIPTAN SUCCINATE. [Suspect]
     Active Substance: SUMATRIPTAN SUCCINATE
  4. DESERILA [Suspect]
     Active Substance: METHYSERGIDE MALEATE
     Dosage: 3 TABLETS A DAY
     Route: 048
  5. DESERILA [Suspect]
     Active Substance: METHYSERGIDE MALEATE
     Indication: MIGRAINE
     Dosage: 25 MG, 8 TABLETS A DAY DIVIDED IN 3 INTAKES
     Route: 048
     Dates: end: 20080707
  6. SUMATRIPTAN. [Suspect]
     Active Substance: SUMATRIPTAN

REACTIONS (6)
  - Migraine [Unknown]
  - Bedridden [Not Recovered/Not Resolved]
  - Incorrect dose administered [Not Recovered/Not Resolved]
  - Liver disorder [Recovered/Resolved]
  - Hepatic enzyme abnormal [Recovered/Resolved]
  - Syncope [Recovered/Resolved]
